FAERS Safety Report 6231954-9 (Version None)
Quarter: 2009Q2

REPORT INFORMATION
  Report Type: 
  Country: None (occurrence: None)
  Receive Date: 20090612
  Receipt Date: 20090527
  Transmission Date: 20091009
  Serious: Yes (Hospitalization)
  Sender: FDA-Public Use
  Company Number: 000940

PATIENT
  Sex: Female
  Weight: 53 kg

DRUGS (7)
  1. NEUPRO [Suspect]
     Indication: PARKINSON'S DISEASE
     Dosage: 2 MG QD TRANSDERMAL, 6 MG QD TRANSDERMAL, 8 MG QD TRANSDERMAL
     Route: 062
     Dates: start: 20080717, end: 20080725
  2. NEUPRO [Suspect]
     Indication: PARKINSON'S DISEASE
     Dosage: 2 MG QD TRANSDERMAL, 6 MG QD TRANSDERMAL, 8 MG QD TRANSDERMAL
     Route: 062
     Dates: start: 20080726, end: 20080802
  3. NEUPRO [Suspect]
     Indication: PARKINSON'S DISEASE
     Dosage: 2 MG QD TRANSDERMAL, 6 MG QD TRANSDERMAL, 8 MG QD TRANSDERMAL
     Route: 062
     Dates: start: 20080803, end: 20080815
  4. NEUPRO [Suspect]
     Indication: PARKINSON'S DISEASE
     Dosage: 2 MG QD TRANSDERMAL, 6 MG QD TRANSDERMAL, 8 MG QD TRANSDERMAL
     Route: 062
     Dates: start: 20080816
  5. CITALOPRAM [Concomitant]
  6. ASPIRIN [Concomitant]
  7. SIMVASTATIN-MEPHA [Concomitant]

REACTIONS (3)
  - FALL [None]
  - GAIT DISTURBANCE [None]
  - UPPER LIMB FRACTURE [None]
